FAERS Safety Report 6403696-8 (Version None)
Quarter: 2009Q4

REPORT INFORMATION
  Report Type: 
  Country: None (occurrence: None)
  Receive Date: 20091016
  Receipt Date: 20091005
  Transmission Date: 20100525
  Serious: Yes (Death, Hospitalization, Other)
  Sender: FDA-Public Use
  Company Number: DE-ELI_LILLY_AND_COMPANY-DE200908000780

PATIENT
  Age: 74 Year
  Sex: Male

DRUGS (4)
  1. EFFIENT [Suspect]
     Indication: ACUTE CORONARY SYNDROME
     Dosage: 10 MG, DAILY (1/D)
     Route: 065
     Dates: start: 20090529, end: 20090625
  2. EFFIENT [Suspect]
     Dosage: 20 MG, DAILY (1/D)
     Dates: start: 20090723
  3. ASPIRIN [Concomitant]
     Dosage: 100 MG, UNKNOWN
     Dates: start: 20090723
  4. HEPARIN [Concomitant]
     Indication: PERCUTANEOUS CORONARY INTERVENTION

REACTIONS (15)
  - ATRIAL FIBRILLATION [None]
  - DEEP VEIN THROMBOSIS [None]
  - HAEMATOMA [None]
  - HAEMORRHAGE [None]
  - MITRAL VALVE INCOMPETENCE [None]
  - MITRAL VALVE PROLAPSE [None]
  - MULTI-ORGAN FAILURE [None]
  - MYELOPROLIFERATIVE DISORDER [None]
  - OVERDOSE [None]
  - PARAESTHESIA [None]
  - PERICARDIAL EFFUSION [None]
  - PERICARDITIS [None]
  - PNEUMONIA PRIMARY ATYPICAL [None]
  - PULMONARY EMBOLISM [None]
  - TRICUSPID VALVE INCOMPETENCE [None]
